FAERS Safety Report 5571290-7 (Version None)
Quarter: 2007Q4

REPORT INFORMATION
  Report Type: 
  Country: None (occurrence: None)
  Receive Date: 20071221
  Receipt Date: 20070504
  Transmission Date: 20080405
  Serious: No
  Sender: FDA-Public Use
  Company Number: A0649986A

PATIENT
  Age: 50 Year
  Sex: Male

DRUGS (3)
  1. FLONASE [Suspect]
     Indication: NASAL CONGESTION
     Route: 045
     Dates: end: 20070413
  2. SUBOXONE [Concomitant]
  3. ANACIN [Concomitant]

REACTIONS (2)
  - DEPRESSION [None]
  - LIBIDO DECREASED [None]
